FAERS Safety Report 10966393 (Version 4)
Quarter: 2015Q2

REPORT INFORMATION
  Report Type: Spontaneous
  Country: US (occurrence: US)
  Receive Date: 20150330
  Receipt Date: 20150515
  Transmission Date: 20150821
  Serious: Yes (Life-Threatening, Hospitalization, Disabling)
  Sender: FDA-Public Use
  Company Number: US-PFIZER INC-2015106242

PATIENT
  Age: 70 Year
  Sex: Female
  Weight: 54.88 kg

DRUGS (9)
  1. SUTENT [Suspect]
     Active Substance: SUNITINIB MALATE
     Indication: RENAL CELL CARCINOMA
     Dosage: 50 MG, DAILY, FOR 3 WEEKS, THEN 1 WEEK OFF
     Route: 048
     Dates: start: 201412, end: 201504
  2. LOVENOX [Concomitant]
     Active Substance: ENOXAPARIN SODIUM
     Dosage: 0.6 ML, 2X/DAY (Q12HR)
     Route: 058
  3. BENADRYL [Concomitant]
     Active Substance: DIPHENHYDRAMINE HYDROCHLORIDE
     Dosage: UNK, AS NEEDED (PRN)
  4. THIN DUODERM [Concomitant]
     Dosage: UNK
  5. SUTENT [Suspect]
     Active Substance: SUNITINIB MALATE
     Dosage: 37.5 MG, DAILY (28 DAYS ON/14DAYS OFF )
     Dates: start: 2015, end: 2015
  6. ASPIRIN. [Concomitant]
     Active Substance: ASPIRIN
     Dosage: 81 MG, 1X/DAY
     Route: 048
  7. SUTENT [Suspect]
     Active Substance: SUNITINIB MALATE
     Dosage: 50 MG, DAILY (3 WEEK ON AND 2 WEEKS OFF )
     Dates: start: 20150418, end: 20150420
  8. ONDANSETRON [Concomitant]
     Active Substance: ONDANSETRON
     Dosage: UNK
  9. MIRALAX [Concomitant]
     Active Substance: POLYETHYLENE GLYCOL 3350
     Dosage: UNK

REACTIONS (25)
  - Dehydration [Unknown]
  - Nausea [Unknown]
  - Constipation [Unknown]
  - Dysgeusia [Unknown]
  - Fatigue [Unknown]
  - Renal cancer [Unknown]
  - Peripheral swelling [Unknown]
  - Onychoclasis [Unknown]
  - Pain [Unknown]
  - Disease progression [Unknown]
  - Pulmonary embolism [Unknown]
  - Abdominal pain lower [Unknown]
  - Pollakiuria [Unknown]
  - Diarrhoea [Unknown]
  - Skin burning sensation [Unknown]
  - Nail disorder [Unknown]
  - Pneumonia [Unknown]
  - White blood cell count decreased [Unknown]
  - Red blood cell count decreased [Unknown]
  - Urinary tract infection [Unknown]
  - Hypotension [Unknown]
  - Neutropenia [Recovered/Resolved]
  - Asthenia [Unknown]
  - Weight decreased [Unknown]
  - Burning sensation [Unknown]

NARRATIVE: CASE EVENT DATE: 2015
